FAERS Safety Report 13456070 (Version 1)
Quarter: 2017Q2

REPORT INFORMATION
  Report Type: Spontaneous
  Country: RU (occurrence: RU)
  Receive Date: 20170418
  Receipt Date: 20170418
  Transmission Date: 20170830
  Serious: Yes (Other)
  Sender: FDA-Public Use
  Company Number: RU-BAYER-2017-067680

PATIENT
  Age: 63 Year
  Sex: Female

DRUGS (4)
  1. ANGELIQ [Suspect]
     Active Substance: DROSPIRENONE\ESTRADIOL
  2. KLIMONORM [Suspect]
     Active Substance: ESTRADIOL VALERATE\LEVONORGESTREL
     Dosage: UNK
     Route: 048
  3. ANGELIQ [Suspect]
     Active Substance: DROSPIRENONE\ESTRADIOL
     Dosage: 1 DF, QD
     Route: 048
     Dates: start: 201611, end: 201704
  4. ANGELIQ [Suspect]
     Active Substance: DROSPIRENONE\ESTRADIOL
     Dosage: UNK
     Route: 048
     Dates: end: 2014

REACTIONS (2)
  - Blood bilirubin increased [None]
  - Pruritus [None]
